FAERS Safety Report 5255477-9 (Version None)
Quarter: 2007Q1

REPORT INFORMATION
  Report Type: 
  Country: None (occurrence: None)
  Receive Date: 20070305
  Receipt Date: 20070223
  Transmission Date: 20070707
  Serious: Yes (Other)
  Sender: FDA-Public Use
  Company Number: AU-SOLVAY-00307000579

PATIENT
  Sex: Male

DRUGS (4)
  1. FLUVOXAMINE MALEATE [Concomitant]
     Indication: ILL-DEFINED DISORDER
     Dosage: DAILY DOSE:  UNKNOWN
     Route: 065
  2. CREON [Suspect]
     Indication: PANCREATIC ENZYME ABNORMALITY
     Dosage: DAILY DOSE: 15000 UNITS; AS USED: 5000 UNITS 3 TIMES A DAY
     Route: 048
     Dates: start: 20050101
  3. METOPROLOL SUCCINATE [Concomitant]
     Indication: ILL-DEFINED DISORDER
     Dosage: DAILY DOSE:  UNKNOWN
     Route: 065
  4. PANAMAX [Concomitant]
     Indication: ILL-DEFINED DISORDER
     Dosage: DAILY DOSE:  UNKNOWN
     Route: 065

REACTIONS (2)
  - AGITATION [None]
  - DRUG DEPENDENCE [None]
